FAERS Safety Report 6642991-4 (Version None)
Quarter: 2010Q1

REPORT INFORMATION
  Report Type: 
  Country: None (occurrence: None)
  Receive Date: 20100319
  Receipt Date: 20100313
  Transmission Date: 20100710
  Serious: Yes (Hospitalization, Other)
  Sender: FDA-Public Use
  Company Number: A0850759A

PATIENT
  Age: 21 Year
  Sex: Female

DRUGS (1)
  1. ZYBAN [Suspect]
     Indication: DRUG USE FOR UNKNOWN INDICATION
     Dates: start: 20100312, end: 20100312

REACTIONS (4)
  - AGITATION [None]
  - HYPOTENSION [None]
  - OVERDOSE [None]
  - TACHYCARDIA [None]
